FAERS Safety Report 6586972-8 (Version None)
Quarter: 2010Q1

REPORT INFORMATION
  Report Type: 
  Country: None (occurrence: None)
  Receive Date: 20100217
  Receipt Date: 20090407
  Transmission Date: 20100710
  Serious: No
  Sender: FDA-Public Use
  Company Number: US-ALLERGAN-0904782US

PATIENT
  Age: 32 Year
  Sex: Female
  Weight: 58.05 kg

DRUGS (2)
  1. BOTOX [Suspect]
     Indication: MUSCLE SPASTICITY
     Dosage: 500 UNITS, SINGLE
     Route: 030
     Dates: start: 20090224, end: 20090224
  2. BOTOX [Suspect]
     Dosage: 400 UNITS, SINGLE
     Route: 030
     Dates: start: 20081125, end: 20081125

REACTIONS (3)
  - DIZZINESS [None]
  - FATIGUE [None]
  - MALAISE [None]
